FAERS Safety Report 6963585-7 (Version None)
Quarter: 2010Q3

REPORT INFORMATION
  Report Type: 
  Country: None (occurrence: None)
  Receive Date: 20100902
  Receipt Date: 20100826
  Transmission Date: 20110219
  Serious: Yes (Death, Hospitalization)
  Sender: FDA-Public Use
  Company Number: US-BRACCO-005128

PATIENT
  Sex: Female

DRUGS (2)
  1. ISOVUE-370 [Suspect]
     Indication: NODULE
     Route: 042
     Dates: start: 20100618, end: 20100618
  2. ISOVUE-370 [Suspect]
     Indication: COMPUTERISED TOMOGRAM
     Route: 042
     Dates: start: 20100618, end: 20100618

REACTIONS (1)
  - ANAPHYLACTIC REACTION [None]
